FAERS Safety Report 8438386-3 (Version None)
Quarter: 2012Q2

REPORT INFORMATION
  Report Type: 
  Country: None (occurrence: None)
  Receive Date: 20120614
  Receipt Date: 20120611
  Transmission Date: 20120825
  Serious: Yes (Hospitalization)
  Sender: FDA-Public Use
  Company Number: US-MERCK-1206USA01946

PATIENT
  Age: 44 Year
  Sex: Male

DRUGS (2)
  1. ISENTRESS [Suspect]
     Indication: HIV INFECTION
     Route: 048
     Dates: start: 20090601, end: 20120510
  2. ATENOLOL [Concomitant]
     Route: 065

REACTIONS (3)
  - TACHYCARDIA [None]
  - ANXIETY [None]
  - DEPRESSED MOOD [None]
